FAERS Safety Report 7979886-X (Version None)
Quarter: 2011Q4

REPORT INFORMATION
  Report Type: 
  Country: None (occurrence: None)
  Receive Date: 20111214
  Receipt Date: 20111202
  Transmission Date: 20120403
  Serious: Yes (Other)
  Sender: FDA-Public Use
  Company Number: ZA-ROCHE-1020056

PATIENT
  Sex: Female

DRUGS (3)
  1. LUCENTIS [Suspect]
     Indication: MACULAR DEGENERATION
     Route: 050
     Dates: start: 20110505
  2. LUCENTIS [Suspect]
     Route: 050
     Dates: start: 20110728
  3. LUCENTIS [Suspect]
     Route: 050
     Dates: start: 20110609

REACTIONS (3)
  - RETINAL OEDEMA [None]
  - VISUAL ACUITY REDUCED [None]
  - RETINAL HAEMORRHAGE [None]
